FAERS Safety Report 24582982 (Version 1)
Quarter: 2024Q4

REPORT INFORMATION
  Report Type: Spontaneous
  Country: US (occurrence: US)
  Receive Date: 20241106
  Receipt Date: 20241106
  Transmission Date: 20250115
  Serious: No
  Sender: UCB
  Company Number: US-UCBSA-2024031322

PATIENT
  Age: 52 Year
  Sex: Female

DRUGS (4)
  1. LACOSAMIDE [Suspect]
     Active Substance: LACOSAMIDE
     Indication: Seizure
     Dosage: 50 MILLIGRAM, 2X/DAY (BID)
  2. LEVETIRACETAM [Suspect]
     Active Substance: LEVETIRACETAM
     Indication: Seizure
     Dosage: 500 MILLIGRAM, 2X/DAY (BID)
  3. PRIMIDONE [Concomitant]
     Active Substance: PRIMIDONE
     Indication: Seizure
     Dosage: 1000 MILLIGRAM, ONCE DAILY (QD)
  4. PRIMIDONE [Concomitant]
     Active Substance: PRIMIDONE
     Dosage: 750 MILLIGRAM, ONCE DAILY (QD)

REACTIONS (3)
  - Headache [Unknown]
  - Fatigue [Unknown]
  - Memory impairment [Unknown]
